FAERS Safety Report 23649379 (Version 2)
Quarter: 2024Q2

REPORT INFORMATION
  Report Type: Report from Study
  Country: FR (occurrence: FR)
  Receive Date: 20240319
  Receipt Date: 20240402
  Transmission Date: 20240715
  Serious: Yes (Other)
  Sender: FDA-Public Use
  Company Number: FR-TAKEDA-2024TUS024462

PATIENT
  Sex: Female

DRUGS (1)
  1. VELAGLUCERASE ALFA [Suspect]
     Active Substance: VELAGLUCERASE ALFA
     Indication: Gaucher^s disease type I
     Dosage: 14 DOSAGE FORM, Q3WEEKS
     Route: 042
     Dates: start: 200504

REACTIONS (6)
  - Nausea [Unknown]
  - Herpes zoster [Unknown]
  - Neurodermatitis [Unknown]
  - Fall [Unknown]
  - Wrist fracture [Recovered/Resolved]
  - Incorrect drug administration rate [Unknown]

NARRATIVE: CASE EVENT DATE: 20230101
